FAERS Safety Report 4747441-0 (Version None)
Quarter: 2005Q3

REPORT INFORMATION
  Report Type: 
  Country: None (occurrence: None)
  Receive Date: 20050815
  Receipt Date: 20050426
  Transmission Date: 20060218
  Serious: No
  Sender: FDA-Public Use
  Company Number: USA050496593

PATIENT
  Age: 65 Year
  Sex: Male
  Weight: 114 kg

DRUGS (5)
  1. CIALIS [Suspect]
     Indication: ERECTILE DYSFUNCTION
     Dosage: 20 MG
  2. PRILOSEC (OMEPRAZOLE RATIOPHARM) [Concomitant]
  3. ATENOLOL [Concomitant]
  4. VERAPAMIL HCL [Concomitant]
  5. LISINOPRIL [Concomitant]

REACTIONS (1)
  - DRUG INEFFECTIVE [None]
